FAERS Safety Report 8679485 (Version 2)
Quarter: 2012Q4

REPORT INFORMATION
  Report Type: 
  Country: DE (occurrence: DE)
  Receive Date: 20120724
  Receipt Date: 20120925
  Transmission Date: 20130627
  Serious: Yes (Death, Other)
  Sender: FDA-Public Use
  Company Number: DE-GENZYME-POMP-1002311

PATIENT
  Age: 45 Year
  Sex: Male
  Weight: 42 kg

DRUGS (1)
  1. MYOZYME [Suspect]
     Indication: GLYCOGEN STORAGE DISEASE TYPE II
     Dosage: 20 mg/kg, q2w
     Route: 042
     Dates: start: 20061016, end: 20120130

REACTIONS (2)
  - Pneumonia [Fatal]
  - Disease progression [Fatal]
